FAERS Safety Report 11271532 (Version 2)
Quarter: 2015Q3

REPORT INFORMATION
  Report Type: Spontaneous
  Country: FR (occurrence: FR)
  Receive Date: 20150714
  Receipt Date: 20150717
  Transmission Date: 20151125
  Serious: Yes (Disabling, Other)
  Sender: FDA-Public Use
  Company Number: FR-ASTRAZENECA-2015SE16378

PATIENT
  Age: 936 Month
  Sex: Female

DRUGS (4)
  1. XEROQUEL [Suspect]
     Active Substance: QUETIAPINE FUMARATE
     Indication: BIPOLAR DISORDER
     Route: 048
     Dates: start: 201409, end: 201502
  2. DEROXAT [Suspect]
     Active Substance: PAROXETINE HYDROCHLORIDE
     Route: 048
     Dates: end: 201502
  3. APROVEL [Concomitant]
     Active Substance: IRBESARTAN
     Indication: HYPERTENSION
  4. SECTRAL [Concomitant]
     Active Substance: ACEBUTOLOL HYDROCHLORIDE
     Indication: HYPERTENSION

REACTIONS (38)
  - Visual acuity reduced [Not Recovered/Not Resolved]
  - Respiratory disorder [Unknown]
  - Malaise [Unknown]
  - Limb discomfort [Unknown]
  - Heart rate increased [Unknown]
  - Increased appetite [Unknown]
  - Hyperprolactinaemia [Unknown]
  - Blood pressure decreased [Unknown]
  - Oedema peripheral [Unknown]
  - Musculoskeletal stiffness [Unknown]
  - Headache [Unknown]
  - Melanocytic naevus [Unknown]
  - Dyskinesia [Unknown]
  - Circumoral oedema [Unknown]
  - Dizziness [Unknown]
  - Faecaloma [Recovered/Resolved]
  - Balance disorder [Unknown]
  - Irritability [Unknown]
  - Dyspnoea [Unknown]
  - Arthralgia [Unknown]
  - Chest pain [Unknown]
  - Weight increased [Unknown]
  - Blood creatine phosphokinase increased [Not Recovered/Not Resolved]
  - Radius fracture [Unknown]
  - Speech disorder [Unknown]
  - Hyperhidrosis [Unknown]
  - Influenza [Unknown]
  - Pyrexia [Unknown]
  - Muscular weakness [Unknown]
  - Fall [Unknown]
  - Heart rate irregular [Unknown]
  - Erythema [Unknown]
  - Dry mouth [Unknown]
  - Off label use [Not Recovered/Not Resolved]
  - Gait disturbance [Unknown]
  - Skin swelling [Unknown]
  - Nasal congestion [Unknown]
  - Constipation [Unknown]

NARRATIVE: CASE EVENT DATE: 201409
